FAERS Safety Report 16480601 (Version 2)
Quarter: 2019Q3

REPORT INFORMATION
  Report Type: Spontaneous
  Country: CA (occurrence: CA)
  Receive Date: 20190626
  Receipt Date: 20190702
  Transmission Date: 20191004
  Serious: Yes (Other)
  Sender: FDA-Public Use
  Company Number: CA-ROCHE-2342649

PATIENT
  Sex: Male

DRUGS (8)
  1. XARELTO [Concomitant]
     Active Substance: RIVAROXABAN
  2. BETA BLOCKING AGENTS [Concomitant]
     Active Substance: UNSPECIFIED INGREDIENT
  3. FOLIC ACID. [Concomitant]
     Active Substance: FOLIC ACID
  4. METFORMIN [Concomitant]
     Active Substance: METFORMIN HYDROCHLORIDE
     Route: 065
  5. METHOTREXATE. [Concomitant]
     Active Substance: METHOTREXATE
  6. ACTEMRA [Suspect]
     Active Substance: TOCILIZUMAB
     Indication: RHEUMATOID ARTHRITIS
     Route: 058
     Dates: start: 20190328
  7. PREDNISONE. [Concomitant]
     Active Substance: PREDNISONE
  8. GLYBURIDE. [Concomitant]
     Active Substance: GLYBURIDE

REACTIONS (7)
  - Feeling hot [Unknown]
  - Peripheral swelling [Unknown]
  - Limb injury [Not Recovered/Not Resolved]
  - Blister [Unknown]
  - Pain in extremity [Unknown]
  - Erythema [Unknown]
  - Localised infection [Not Recovered/Not Resolved]
